FAERS Safety Report 7511067-6 (Version None)
Quarter: 2011Q2

REPORT INFORMATION
  Report Type: 
  Country: None (occurrence: None)
  Receive Date: 20110531
  Receipt Date: 20110521
  Transmission Date: 20111010
  Serious: Yes (Other)
  Sender: FDA-Public Use
  Company Number: US-BRACCO-006286

PATIENT
  Age: 43 Year
  Sex: Female

DRUGS (18)
  1. PROHANCE [Suspect]
     Dates: start: 20100329, end: 20100329
  2. MAGNEVIST [Suspect]
     Dates: start: 20070315, end: 20070315
  3. MAGNEVIST [Suspect]
     Dates: start: 20060608, end: 20060608
  4. OMNISCAN [Suspect]
     Indication: NUCLEAR MAGNETIC RESONANCE IMAGING
     Dates: start: 20060220, end: 20060220
  5. PROHANCE [Suspect]
     Indication: NUCLEAR MAGNETIC RESONANCE IMAGING
     Dates: start: 20091228, end: 20091228
  6. PROHANCE [Suspect]
     Dates: start: 20091001, end: 20091001
  7. PROHANCE [Suspect]
     Dates: start: 20070913, end: 20070913
  8. MAGNEVIST [Suspect]
     Dates: start: 20061214, end: 20061214
  9. PROHANCE [Suspect]
     Dates: start: 20081020, end: 20081020
  10. MAGNEVIST [Suspect]
     Dates: start: 20060831, end: 20060831
  11. MAGNEVIST [Suspect]
     Dates: start: 20070614, end: 20070614
  12. MAGNEVIST [Suspect]
     Dates: start: 20051005, end: 20051005
  13. MAGNEVIST [Suspect]
     Dosage: 7 ML (3T)
     Dates: start: 20060410, end: 20060410
  14. PROHANCE [Suspect]
     Dates: start: 20090420, end: 20090420
  15. PROHANCE [Suspect]
     Dates: start: 20090917, end: 20090917
  16. TEMODAR [Concomitant]
  17. PROHANCE [Suspect]
     Dates: start: 20080626, end: 20080626
  18. MAGNEVIST [Suspect]
     Indication: NUCLEAR MAGNETIC RESONANCE IMAGING
     Dates: start: 20060105, end: 20060105

REACTIONS (1)
  - NEPHROGENIC SYSTEMIC FIBROSIS [None]
